FAERS Safety Report 8916069 (Version 1)
Quarter: 2012Q4

REPORT INFORMATION
  Report Type: Report from Study
  Country: NL (occurrence: NL)
  Receive Date: 20121119
  Receipt Date: 20121119
  Transmission Date: 20130627
  Serious: Yes (Hospitalization, Other)
  Sender: FDA-Public Use
  Company Number: NL-NAPPMUNDI-DEU-2012-0009776

PATIENT
  Age: 49 Year
  Sex: Female
  Weight: 78 kg

DRUGS (11)
  1. OXYCODONE HYDROCHLORIDE [Suspect]
     Indication: PRODUCT USED FOR UNKNOWN INDICATION
     Dosage: UNK
     Dates: start: 20120812
  2. RITUXIMAB [Suspect]
     Indication: RENAL TRANSPLANT
     Dosage: 700 mg, single
     Route: 042
     Dates: start: 20111110
  3. PREDNISONE [Concomitant]
     Dosage: UNK mg, UNK
  4. SULFAMETHOXAZOLE AND TRIMETHOPRIM [Concomitant]
     Dosage: UNK mg, UNK
  5. MYCOPHENOLIC ACID [Concomitant]
     Dosage: UNK mg, UNK
  6. ALFACALCIDOL [Concomitant]
     Dosage: UNK
  7. POSACONAZOLE [Concomitant]
     Dosage: UNK mg, UNK
  8. SODIUM BICARBONATE [Concomitant]
     Dosage: UNK mg, UNK
  9. PRAVASTATIN SODIUM [Concomitant]
     Dosage: UNK
  10. METOPROLOL [Concomitant]
  11. HYDROKON [Concomitant]

REACTIONS (4)
  - Genital herpes zoster [Unknown]
  - Urinary retention [Recovered/Resolved]
  - Oedema genital [Unknown]
  - Urethral disorder [Unknown]
